FAERS Safety Report 18271525 (Version 1)
Quarter: 2020Q3

REPORT INFORMATION
  Report Type: Spontaneous
  Country: US (occurrence: US)
  Receive Date: 20200916
  Receipt Date: 20200916
  Transmission Date: 20201103
  Serious: No
  Sender: FDA-Public Use
  Company Number: US-TARO-2020TAR00221

PATIENT

DRUGS (2)
  1. LORATADINE ORAL SOLUTION USP 5 MG/5 ML [Suspect]
     Active Substance: LORATADINE
     Dosage: BID (ACCIDENTALLY TOOK A SECOND DOSE)
     Route: 048
     Dates: start: 20200210, end: 20200210
  2. LORATADINE ORAL SOLUTION USP 5 MG/5 ML [Suspect]
     Active Substance: LORATADINE
     Indication: NASAL CONGESTION
     Dosage: UNK, QD
     Route: 048

REACTIONS (3)
  - Vomiting [Recovered/Resolved]
  - Dysphagia [Recovered/Resolved]
  - Wrong dose [Unknown]

NARRATIVE: CASE EVENT DATE: 20200210
